FAERS Safety Report 8051907-8 (Version None)
Quarter: 2012Q1

REPORT INFORMATION
  Report Type: 
  Country: None (occurrence: None)
  Receive Date: 20120111
  Receipt Date: 20120104
  Transmission Date: 20120608
  Serious: Yes (Other)
  Sender: FDA-Public Use
  Company Number: 2012MA000195

PATIENT
  Age: 47 Year
  Sex: Male

DRUGS (5)
  1. SIMVASTATIN [Concomitant]
  2. METFORMIN [Concomitant]
  3. NOVORAPID [Concomitant]
  4. LOSARTAN POTASSIUM [Suspect]
     Indication: HYPERTENSION
     Dosage: 300 MG
  5. INSULIN [Concomitant]

REACTIONS (1)
  - RASH PAPULAR [None]
